FAERS Safety Report 7581318-0 (Version None)
Quarter: 2011Q2

REPORT INFORMATION
  Report Type: 
  Country: None (occurrence: None)
  Receive Date: 20110629
  Receipt Date: 20110620
  Transmission Date: 20111010
  Serious: Yes (Hospitalization)
  Sender: FDA-Public Use
  Company Number: US-ROCHE-786193

PATIENT
  Sex: Male
  Weight: 196 kg

DRUGS (2)
  1. PEMETREXED [Suspect]
     Route: 042
     Dates: start: 20100519, end: 20110216
  2. BEVACIZUMAB [Suspect]
     Route: 042
     Dates: start: 20100519, end: 20110216

REACTIONS (1)
  - ATRIAL FIBRILLATION [None]
